FAERS Safety Report 5902684-5 (Version None)
Quarter: 2008Q3

REPORT INFORMATION
  Report Type: 
  Country: None (occurrence: None)
  Receive Date: 20080929
  Receipt Date: 20080929
  Transmission Date: 20090109
  Serious: No
  Sender: FDA-Public Use
  Company Number: None

PATIENT
  Age: 16 Year
  Sex: Male
  Weight: 75 kg

DRUGS (2)
  1. CEFOTAN [Suspect]
     Indication: PROPHYLAXIS
     Dosage: 1GM X1 IV  1 DOSE
     Route: 042
     Dates: start: 20080909
  2. DILAUDID [Concomitant]

REACTIONS (2)
  - RASH MACULAR [None]
  - TONGUE DISORDER [None]
